FAERS Safety Report 6649508-9 (Version None)
Quarter: 2010Q1

REPORT INFORMATION
  Report Type: 
  Country: None (occurrence: None)
  Receive Date: 20100324
  Receipt Date: 20100324
  Transmission Date: 20100710
  Serious: Yes (Hospitalization)
  Sender: FDA-Public Use
  Company Number: None

PATIENT
  Age: 36 Year
  Sex: Female
  Weight: 77 kg

DRUGS (4)
  1. LOESTRIN 21 1/20 [Suspect]
     Indication: ORAL CONTRACEPTION
     Dosage: 1/20 DAILY-3WK ON 1/OFF PO, PRIOR TO ADMISSION
     Route: 048
  2. BUSPIRONE HCL [Concomitant]
  3. ZIPRASIDONE HCL [Concomitant]
  4. OMEPRAZOLE [Concomitant]

REACTIONS (3)
  - DEEP VEIN THROMBOSIS [None]
  - GROIN PAIN [None]
  - LOCAL SWELLING [None]
